APPROVED DRUG PRODUCT: BUPIVACAINE HYDROCHLORIDE
Active Ingredient: BUPIVACAINE HYDROCHLORIDE
Strength: 0.5%
Dosage Form/Route: INJECTABLE;INJECTION
Application: A070597 | Product #001 | TE Code: AP
Applicant: HOSPIRA INC
Approved: Mar 3, 1987 | RLD: No | RS: No | Type: RX